FAERS Safety Report 10227191 (Version 6)
Quarter: 2014Q3

REPORT INFORMATION
  Report Type: Report from Study
  Country: CH (occurrence: CH)
  Receive Date: 20140610
  Receipt Date: 20140728
  Transmission Date: 20150326
  Serious: Yes (Hospitalization)
  Sender: FDA-Public Use
  Company Number: CH-ROCHE-1414696

PATIENT
  Age: 61 Year
  Sex: Male
  Weight: 67.7 kg

DRUGS (65)
  1. FLUDARABINE [Suspect]
     Active Substance: FLUDARABINE PHOSPHATE
     Dosage: CYCLE 5, DAY 3: PLANNED DOSE: 25 MG/M2?INFUSION RATE: NOT AVAILABLE
     Route: 042
     Dates: start: 20140306, end: 20140306
  2. CEFEPIME [Concomitant]
     Active Substance: CEFEPIME\CEFEPIME HYDROCHLORIDE
     Route: 042
     Dates: start: 20131223, end: 20131226
  3. BACTRIM [Concomitant]
     Active Substance: SULFAMETHOXAZOLE\TRIMETHOPRIM
     Dosage: ORAL
     Route: 065
     Dates: start: 20131113
  4. ZOFRAN [Concomitant]
     Active Substance: ONDANSETRON HYDROCHLORIDE
     Route: 048
     Dates: start: 20140409, end: 20140603
  5. OBINUTUZUMAB [Suspect]
     Active Substance: OBINUTUZUMAB
     Indication: CHRONIC LYMPHOCYTIC LEUKAEMIA
     Dosage: CYCLE 1, DAY 1: PLANNED DOSE - 25, ACTUAL DOSE: 25?PLANNED INFUSION RATE: 12.5, ACTUAL INFUSION RATE
     Route: 042
     Dates: start: 20131113, end: 20131113
  6. OBINUTUZUMAB [Suspect]
     Active Substance: OBINUTUZUMAB
     Dosage: CYCLE 1, DAY 8: PLANNED DOSE - 1000, ACTUAL DOSE: 1000?PLANNED INFUSION RATE: 400, ACTUAL INFUSION R
     Route: 042
     Dates: start: 20131120, end: 20131120
  7. FLUDARABINE [Suspect]
     Active Substance: FLUDARABINE PHOSPHATE
     Indication: CHRONIC LYMPHOCYTIC LEUKAEMIA
     Dosage: CYCLE 1, DAY1: PLANNED DOSE: 25 MG/KG?INFUSION RATE: NOT AVAILABLE?DOSE: 49.18 MG/M2, LAST DOSE PRIO
     Route: 042
     Dates: start: 20131113, end: 20131113
  8. FLUDARABINE [Suspect]
     Active Substance: FLUDARABINE PHOSPHATE
     Dosage: CYCLE 4, DAY 2: PLANNED DOSE: 25 MG/M2?INFUSION RATE: NOT AVAILABLE
     Route: 042
     Dates: start: 20140206, end: 20140206
  9. CYCLOPHOSPHAMIDE. [Suspect]
     Active Substance: CYCLOPHOSPHAMIDE
     Dosage: CYCLE 2, DAY 1: PLANNED DOSE- 250 MG/M2?INFUSION RATE: NOT AVAILABLE
     Route: 042
     Dates: start: 20131211, end: 20131211
  10. CYCLOPHOSPHAMIDE. [Suspect]
     Active Substance: CYCLOPHOSPHAMIDE
     Dosage: CYCLE 3, DAY 2: PLANNED DOSE- 250 MG/M2?INFUSION RATE: NOT AVAILABLE
     Route: 042
     Dates: start: 20140209, end: 20140209
  11. CYCLOPHOSPHAMIDE. [Suspect]
     Active Substance: CYCLOPHOSPHAMIDE
     Dosage: CYCLE 6, DAY 1: PLANNED DOSE- 250 MG/M2?INFUSION RATE: NOT AVAILABLE
     Route: 042
     Dates: start: 20140402, end: 20140402
  12. CYCLOPHOSPHAMIDE. [Suspect]
     Active Substance: CYCLOPHOSPHAMIDE
     Dosage: CYCLE 6, DAY 2: PLANNED DOSE- 250 MG/M2?INFUSION RATE: NOT AVAILABLE
     Route: 042
     Dates: start: 20140403, end: 20140403
  13. ZOFRAN [Concomitant]
     Active Substance: ONDANSETRON HYDROCHLORIDE
     Route: 048
     Dates: start: 20140115, end: 20140122
  14. DEXPANTHENOL. [Concomitant]
     Active Substance: DEXPANTHENOL
     Route: 048
     Dates: start: 20140312, end: 20140319
  15. OBINUTUZUMAB [Suspect]
     Active Substance: OBINUTUZUMAB
     Dosage: CYCLE 1, DAY 2: PLANNED DOSE - 975, ACTUAL DOSE: 975?PLANNED INFUSION RATE: 400, ACTUAL INFUSION RAT
     Route: 042
     Dates: start: 20131114, end: 20131114
  16. OBINUTUZUMAB [Suspect]
     Active Substance: OBINUTUZUMAB
     Dosage: CYCLE 5, DAY 1: PLANNED DOSE - 100, ACTUAL DOSE: 1000?PLANNED INFUSION RATE: 400, ACTUAL INFUSION RA
     Route: 042
     Dates: start: 20140304, end: 20140304
  17. FLUDARABINE [Suspect]
     Active Substance: FLUDARABINE PHOSPHATE
     Dosage: CYCLE 1, DAY 3: PLANNED DOSE: 25 MG/M2?INFUSION RATE: NOT AVAILABLE
     Route: 042
     Dates: start: 20131115, end: 20131115
  18. FLUDARABINE [Suspect]
     Active Substance: FLUDARABINE PHOSPHATE
     Dosage: CYCLE 2, DAY 1: PLANNED DOSE: 25 MG/M2?INFUSION RATE: NOT AVAILABLE
     Route: 042
     Dates: start: 20131211, end: 20131211
  19. FLUDARABINE [Suspect]
     Active Substance: FLUDARABINE PHOSPHATE
     Dosage: CYCLE 5, DAY 1: PLANNED DOSE: 25 MG/M2?INFUSION RATE: NOT AVAILABLE
     Route: 042
     Dates: start: 20140304, end: 20140304
  20. CYCLOPHOSPHAMIDE. [Suspect]
     Active Substance: CYCLOPHOSPHAMIDE
     Indication: CHRONIC LYMPHOCYTIC LEUKAEMIA
     Dosage: CYCLE 1, DAY 1: PLANNED DOSE- 250 MG/KG?INFUSION RATE: NOT AVAILABLE?LAST DOSE PRIOR TO SAE: 04/APR/
     Route: 042
     Dates: start: 20131113, end: 20131113
  21. CYCLOPHOSPHAMIDE. [Suspect]
     Active Substance: CYCLOPHOSPHAMIDE
     Dosage: CYCLE 3, DAY 3: PLANNED DOSE- 250 MG/M2?INFUSION RATE: NOT AVAILABLE
     Route: 042
     Dates: start: 20140110, end: 20140110
  22. CYCLOPHOSPHAMIDE. [Suspect]
     Active Substance: CYCLOPHOSPHAMIDE
     Dosage: CYCLE 6, DAY 3: PLANNED DOSE- 250 MG/M2?INFUSION RATE: NOT AVAILABLE
     Route: 042
     Dates: start: 20140404, end: 20140404
  23. DAFALGAN [Concomitant]
     Active Substance: ACETAMINOPHEN
     Route: 048
     Dates: start: 20131127, end: 20140409
  24. PREDNISOLONE. [Concomitant]
     Active Substance: PREDNISOLONE
     Dosage: DAY 1 AND 2 OF EVERY CYCLE
     Route: 048
     Dates: start: 20131113, end: 20140402
  25. RINGERS LACTATE [Concomitant]
     Route: 042
     Dates: start: 20140507, end: 20140514
  26. OBINUTUZUMAB [Suspect]
     Active Substance: OBINUTUZUMAB
     Dosage: CYCLE 3, DAY 1: PLANNED DOSE - 100, ACTUAL DOSE: 1000?PLANNED INFUSION RATE: 400, ACTUAL INFUSION RA
     Route: 042
     Dates: start: 20140108, end: 20140108
  27. FLUDARABINE [Suspect]
     Active Substance: FLUDARABINE PHOSPHATE
     Dosage: CYCLE 4, DAY 1: PLANNED DOSE: 25 MG/M2?INFUSION RATE: NOT AVAILABLE
     Route: 042
     Dates: start: 20140205, end: 20140205
  28. CYCLOPHOSPHAMIDE. [Suspect]
     Active Substance: CYCLOPHOSPHAMIDE
     Dosage: CYCLE 2, DAY 3: PLANNED DOSE- 250 MG/M2?INFUSION RATE: NOT AVAILABLE
     Route: 042
     Dates: start: 20131213, end: 20131213
  29. CYCLOPHOSPHAMIDE. [Suspect]
     Active Substance: CYCLOPHOSPHAMIDE
     Dosage: CYCLE 4, DAY 1: PLANNED DOSE- 250 MG/M2?INFUSION RATE: NOT AVAILABLE
     Route: 042
     Dates: start: 20140205, end: 20140205
  30. CYCLOPHOSPHAMIDE. [Suspect]
     Active Substance: CYCLOPHOSPHAMIDE
     Dosage: CYCLE 4, DAY 3: PLANNED DOSE- 250 MG/M2?INFUSION RATE: NOT AVAILABLE
     Route: 042
     Dates: start: 20140207, end: 20140207
  31. CYCLOPHOSPHAMIDE. [Suspect]
     Active Substance: CYCLOPHOSPHAMIDE
     Dosage: CYCLE 5, DAY 1: PLANNED DOSE- 250 MG/M2?INFUSION RATE: NOT AVAILABLE
     Route: 042
     Dates: start: 20140304, end: 20140304
  32. CYCLOPHOSPHAMIDE. [Suspect]
     Active Substance: CYCLOPHOSPHAMIDE
     Dosage: CYCLE 5, DAY 3: PLANNED DOSE- 250 MG/M2?INFUSION RATE: NOT AVAILABLE
     Route: 042
     Dates: start: 20140306, end: 20140306
  33. NEXIUM [Concomitant]
     Active Substance: ESOMEPRAZOLE MAGNESIUM
     Route: 048
     Dates: start: 20140112, end: 20140212
  34. EXCIPIAL U LIPOLOTION [Concomitant]
     Route: 061
     Dates: start: 20140320, end: 20140402
  35. OBINUTUZUMAB [Suspect]
     Active Substance: OBINUTUZUMAB
     Dosage: CYCLE 1, DAY 15: PLANNED DOSE - 100, ACTUAL DOSE: 1000?PLANNED INFUSION RATE: 400, ACTUAL INFUSION R
     Route: 042
     Dates: start: 20131127, end: 20131127
  36. OBINUTUZUMAB [Suspect]
     Active Substance: OBINUTUZUMAB
     Dosage: CYCLE 6, DAY 1: PLANNED DOSE - 100, ACTUAL DOSE: 1000?PLANNED INFUSION RATE: 400, ACTUAL INFUSION RA
     Route: 042
     Dates: start: 20140402, end: 20140402
  37. FLUDARABINE [Suspect]
     Active Substance: FLUDARABINE PHOSPHATE
     Dosage: CYCLE 2, DAY 3: PLANNED DOSE: 25 MG/M2?INFUSION RATE: NOT AVAILABLE
     Route: 042
     Dates: start: 20131213, end: 20131213
  38. FLUDARABINE [Suspect]
     Active Substance: FLUDARABINE PHOSPHATE
     Dosage: CYCLE 3, DAY 2: PLANNED DOSE: 25 MG/M2?INFUSION RATE: NOT AVAILABLE
     Route: 042
     Dates: start: 20140109, end: 20140109
  39. FLUDARABINE [Suspect]
     Active Substance: FLUDARABINE PHOSPHATE
     Dosage: CYCLE 5, DAY 2: PLANNED DOSE: 25 MG/M2?INFUSION RATE: NOT AVAILABLE
     Route: 042
     Dates: start: 20140305, end: 20140305
  40. CYCLOPHOSPHAMIDE. [Suspect]
     Active Substance: CYCLOPHOSPHAMIDE
     Dosage: CYCLE 5, DAY 2: PLANNED DOSE- 250 MG/M2?INFUSION RATE: NOT AVAILABLE
     Route: 042
     Dates: start: 20140305, end: 20140305
  41. FLUDARABINE [Suspect]
     Active Substance: FLUDARABINE PHOSPHATE
     Dosage: CYCLE 2, DAY 2: PLANNED DOSE: 25 MG/M2?INFUSION RATE: NOT AVAILABLE
     Route: 042
     Dates: start: 20131212, end: 20131212
  42. FLUDARABINE [Suspect]
     Active Substance: FLUDARABINE PHOSPHATE
     Dosage: CYCLE 3, DAY 1: PLANNED DOSE: 25 MG/M2?INFUSION RATE: NOT AVAILABLE
     Route: 042
     Dates: start: 20140108, end: 20140108
  43. FLUDARABINE [Suspect]
     Active Substance: FLUDARABINE PHOSPHATE
     Dosage: CYCLE 3, DAY 3: PLANNED DOSE: 25 MG/M2?INFUSION RATE: NOT AVAILABLE
     Route: 042
     Dates: start: 20140110, end: 20140110
  44. FLUDARABINE [Suspect]
     Active Substance: FLUDARABINE PHOSPHATE
     Dosage: CYCLE 4, DAY 3: PLANNED DOSE: 25 MG/M2?INFUSION RATE: NOT AVAILABLE
     Route: 042
     Dates: start: 20140207, end: 20140207
  45. CYCLOPHOSPHAMIDE. [Suspect]
     Active Substance: CYCLOPHOSPHAMIDE
     Dosage: CYCLE 4, DAY 2: PLANNED DOSE- 250 MG/M2?INFUSION RATE: NOT AVAILABLE
     Route: 042
     Dates: start: 20140206, end: 20140206
  46. NEXIUM [Concomitant]
     Active Substance: ESOMEPRAZOLE MAGNESIUM
     Route: 048
     Dates: start: 20140212
  47. IMODIUM [Concomitant]
     Active Substance: LOPERAMIDE HYDROCHLORIDE
     Route: 048
     Dates: start: 20140310, end: 20140323
  48. MUNDISAL GEL [Concomitant]
     Route: 061
     Dates: start: 20140312, end: 20140402
  49. OBINUTUZUMAB [Suspect]
     Active Substance: OBINUTUZUMAB
     Dosage: CYCLE 2, DAY 1: PLANNED DOSE - 100, ACTUAL DOSE: 1000?PLANNED INFUSION RATE: 400, ACTUAL INFUSION RA
     Route: 042
     Dates: start: 20131211, end: 20131211
  50. OBINUTUZUMAB [Suspect]
     Active Substance: OBINUTUZUMAB
     Dosage: CYCLE 4, DAY 1: PLANNED DOSE - 100, ACTUAL DOSE: 1000?PLANNED INFUSION RATE: 400, ACTUAL INFUSION RA
     Route: 042
     Dates: start: 20140205, end: 20140205
  51. FLUDARABINE [Suspect]
     Active Substance: FLUDARABINE PHOSPHATE
     Dosage: CYCLE 1, DAY 2: PLANNED DOSE: 25 MG/M2?INFUSION RATE: NOT AVAILABLE
     Route: 042
     Dates: start: 20131114, end: 20131114
  52. FLUDARABINE [Suspect]
     Active Substance: FLUDARABINE PHOSPHATE
     Dosage: CYCLE 6, DAY 2: PLANNED DOSE: 25 MG/M2?INFUSION RATE: NOT AVAILABLE
     Route: 042
     Dates: start: 20140403, end: 20140403
  53. CEFEPIME [Concomitant]
     Active Substance: CEFEPIME\CEFEPIME HYDROCHLORIDE
     Route: 048
     Dates: start: 20140507, end: 20140514
  54. VALTREX [Concomitant]
     Active Substance: VALACYCLOVIR HYDROCHLORIDE
     Route: 048
     Dates: start: 20131113
  55. PARACETAMOL [Concomitant]
     Active Substance: ACETAMINOPHEN
     Route: 048
     Dates: start: 20131113, end: 20140402
  56. FLUDARABINE [Suspect]
     Active Substance: FLUDARABINE PHOSPHATE
     Dosage: CYCLE 6, DAY 1: PLANNED DOSE: 25 MG/M2?INFUSION RATE: NOT AVAILABLE
     Route: 042
     Dates: start: 20140402, end: 20140402
  57. FLUDARABINE [Suspect]
     Active Substance: FLUDARABINE PHOSPHATE
     Dosage: CYCLE 6, DAY 3: PLANNED DOSE: 25 MG/M2?INFUSION RATE: NOT AVAILABLE
     Route: 042
     Dates: start: 20140404, end: 20140404
  58. CYCLOPHOSPHAMIDE. [Suspect]
     Active Substance: CYCLOPHOSPHAMIDE
     Dosage: CYCLE 1, DAY 2: PLANNED DOSE- 250 MG/M2?INFUSION RATE: NOT AVAILABLE
     Route: 042
     Dates: start: 20131114, end: 20131114
  59. CYCLOPHOSPHAMIDE. [Suspect]
     Active Substance: CYCLOPHOSPHAMIDE
     Dosage: CYCLE 1, DAY 3: PLANNED DOSE- 250 MG/M2?INFUSION RATE: NOT AVAILABLE
     Route: 042
     Dates: start: 20131115, end: 20131115
  60. CYCLOPHOSPHAMIDE. [Suspect]
     Active Substance: CYCLOPHOSPHAMIDE
     Dosage: CYCLE 2, DAY 2: PLANNED DOSE- 250 MG/M2?INFUSION RATE: NOT AVAILABLE
     Route: 042
     Dates: start: 20131212, end: 20131212
  61. CYCLOPHOSPHAMIDE. [Suspect]
     Active Substance: CYCLOPHOSPHAMIDE
     Dosage: CYCLE 3, DAY 1: PLANNED DOSE- 250 MG/M2?INFUSION RATE: NOT AVAILABLE
     Route: 042
     Dates: start: 20140108, end: 20140108
  62. ALLOPURINOL. [Concomitant]
     Active Substance: ALLOPURINOL
     Route: 048
     Dates: start: 20131111, end: 20140402
  63. IMODIUM [Concomitant]
     Active Substance: LOPERAMIDE HYDROCHLORIDE
     Route: 048
     Dates: start: 20140409, end: 20140603
  64. SOLCOSERYL [Concomitant]
     Active Substance: SOLCOSERYL
     Dosage: PULP
     Route: 048
     Dates: start: 20140312, end: 20140319
  65. TAVEGYL [Concomitant]
     Active Substance: CLEMASTINE FUMARATE
     Route: 042
     Dates: start: 20131113, end: 20140402

REACTIONS (1)
  - Fungal oesophagitis [Recovered/Resolved]

NARRATIVE: CASE EVENT DATE: 20140604
